FAERS Safety Report 8156266-8 (Version None)
Quarter: 2012Q1

REPORT INFORMATION
  Report Type: 
  Country: None (occurrence: None)
  Receive Date: 20120216
  Receipt Date: 20120210
  Transmission Date: 20120608
  Serious: Yes (Other)
  Sender: FDA-Public Use
  Company Number: GER/UKI/12/0023001

PATIENT
  Age: 78 Year
  Sex: Female

DRUGS (6)
  1. COLECALCIFEROL(COLECALCIFEROL) [Concomitant]
  2. PREGABALIN [Concomitant]
  3. LOPERAMIDE [Concomitant]
  4. SIMVASTATIN [Concomitant]
  5. ZOPICLONE(ZOPICLONE) [Concomitant]
  6. SERTRALINE HYDROCHLORIDE [Suspect]
     Indication: DEPRESSION
     Dosage: 50 MG, ORAL
     Route: 048
     Dates: start: 20111230, end: 20120113

REACTIONS (3)
  - LIP BLISTER [None]
  - OROPHARYNGEAL BLISTERING [None]
  - ERYTHEMA MULTIFORME [None]
